FAERS Safety Report 23398244 (Version 3)
Quarter: 2025Q1

REPORT INFORMATION
  Report Type: Spontaneous
  Country: US (occurrence: US)
  Receive Date: 20240112
  Receipt Date: 20250205
  Transmission Date: 20250409
  Serious: No
  Sender: PFIZER
  Company Number: US-PFIZER INC-202400009176

PATIENT
  Age: 60 Year
  Sex: Female
  Weight: 58.97 kg

DRUGS (1)
  1. PREMPRO [Suspect]
     Active Substance: ESTROGENS, CONJUGATED\MEDROXYPROGESTERONE ACETATE
     Indication: Premature menopause
     Dosage: ONE TABLET IN THE MORNING EVERYDAY

REACTIONS (3)
  - Pharyngeal disorder [Unknown]
  - Impaired work ability [Unknown]
  - Feeling abnormal [Unknown]
